FAERS Safety Report 7431843-8 (Version None)
Quarter: 2011Q2

REPORT INFORMATION
  Report Type: 
  Country: None (occurrence: None)
  Receive Date: 20110422
  Receipt Date: 20110412
  Transmission Date: 20111010
  Serious: Yes (Other)
  Sender: FDA-Public Use
  Company Number: US-ELI_LILLY_AND_COMPANY-US201003001740

PATIENT
  Sex: Female

DRUGS (7)
  1. FORTEO [Suspect]
     Dosage: 20 UG, DAILY (1/D)
     Route: 065
  2. ANALGESICS [Concomitant]
     Indication: PAIN IN EXTREMITY
     Dosage: UNK, UNKNOWN
  3. LACTULOSE [Concomitant]
     Indication: CONSTIPATION
     Dosage: UNK, UNKNOWN
  4. FORTEO [Suspect]
     Indication: OSTEOPOROSIS
     Dosage: 20 UG, DAILY (1/D)
     Route: 065
     Dates: start: 20091001
  5. FORTEO [Suspect]
     Dosage: 20 UG, DAILY (1/D)
     Route: 065
  6. ANALGESICS [Concomitant]
     Dosage: UNK, UNKNOWN
  7. FORTEO [Suspect]
     Dosage: 20 UG, DAILY (1/D)
     Route: 065

REACTIONS (12)
  - FALL [None]
  - BONE DISORDER [None]
  - CONSTIPATION [None]
  - BALANCE DISORDER [None]
  - MEMORY IMPAIRMENT [None]
  - DRUG DOSE OMISSION [None]
  - UNDERDOSE [None]
  - DIZZINESS [None]
  - BODY HEIGHT DECREASED [None]
  - ANXIETY [None]
  - VISUAL IMPAIRMENT [None]
  - DRUG INEFFECTIVE [None]
